FAERS Safety Report 14384619 (Version 1)
Quarter: 2018Q1

REPORT INFORMATION
  Report Type: Spontaneous
  Country: US (occurrence: US)
  Receive Date: 20180115
  Receipt Date: 20180115
  Transmission Date: 20180509
  Serious: No
  Sender: FDA-Public Use
  Company Number: US-GALDERMA-US17010756

PATIENT
  Age: 17 Year
  Sex: Female

DRUGS (1)
  1. ADAPALENE/BPO [Suspect]
     Active Substance: ADAPALENE\BENZOYL PEROXIDE
     Indication: ACNE
     Dosage: 0.1% / 2.5%
     Route: 061
     Dates: start: 201709

REACTIONS (1)
  - Acne [Not Recovered/Not Resolved]
